FAERS Safety Report 14908729 (Version 1)
Quarter: 2018Q2

REPORT INFORMATION
  Report Type: Spontaneous
  Country: US (occurrence: US)
  Receive Date: 20180430
  Receipt Date: 20180430
  Transmission Date: 20180711
  Serious: Yes (Disabling)
  Sender: FDA-Public Use
  Company Number: None

PATIENT
  Sex: Female
  Weight: 111.15 kg

DRUGS (4)
  1. MONTELUKAST [Concomitant]
     Active Substance: MONTELUKAST SODIUM
  2. IRBESAR/ HCTZ 150-12.5 MG [Suspect]
     Active Substance: HYDROCHLOROTHIAZIDE\IRBESARTAN
     Indication: HYPERTENSION
     Dosage: ?          QUANTITY:30 TABLET(S);?
     Route: 048
     Dates: start: 20171120, end: 20180416
  3. FLONASE [Concomitant]
     Active Substance: FLUTICASONE PROPIONATE
  4. ALEVE [Concomitant]
     Active Substance: NAPROXEN SODIUM

REACTIONS (6)
  - Headache [None]
  - Hyperventilation [None]
  - Dyspnoea exertional [None]
  - Dyspnoea [None]
  - Dizziness [None]
  - Heart rate increased [None]
